FAERS Safety Report 17957697 (Version 2)
Quarter: 2020Q3

REPORT INFORMATION
  Report Type: Spontaneous
  Country: US (occurrence: US)
  Receive Date: 20200629
  Receipt Date: 20200710
  Transmission Date: 20201103
  Serious: Yes (Other)
  Sender: FDA-Public Use
  Company Number: US-ASTRAZENECA-2020SE79905

PATIENT
  Sex: Female
  Weight: 68 kg

DRUGS (4)
  1. WATER PILL NOT SPECIFIED [Concomitant]
  2. SPIRIVA [Concomitant]
     Active Substance: TIOTROPIUM BROMIDE MONOHYDRATE
  3. SYMBICORT [Suspect]
     Active Substance: BUDESONIDE\FORMOTEROL FUMARATE DIHYDRATE
     Indication: CHRONIC OBSTRUCTIVE PULMONARY DISEASE
     Dosage: SYMBICORT 160/4.5 MCG 120 INHALATIONS, 2 PUFFS
     Route: 055
     Dates: start: 201509
  4. ADVAIR HFA [Concomitant]
     Active Substance: FLUTICASONE PROPIONATE\SALMETEROL XINAFOATE

REACTIONS (8)
  - Cardiac failure [Unknown]
  - Lung disorder [Unknown]
  - Illness [Unknown]
  - Device ineffective [Unknown]
  - Cardiac disorder [Unknown]
  - Dyspnoea [Unknown]
  - Wrong technique in device usage process [Unknown]
  - Drug delivery system issue [Not Recovered/Not Resolved]
